FAERS Safety Report 5583974-5 (Version None)
Quarter: 2008Q1

REPORT INFORMATION
  Report Type: 
  Country: None (occurrence: None)
  Receive Date: 20080108
  Receipt Date: 20080102
  Transmission Date: 20080703
  Serious: Yes (Other)
  Sender: FDA-Public Use
  Company Number: US-JNJFOC-20070503914

PATIENT
  Sex: Female
  Weight: 85.73 kg

DRUGS (7)
  1. REMICADE [Suspect]
     Route: 042
  2. REMICADE [Suspect]
     Route: 042
  3. REMICADE [Suspect]
     Indication: COLITIS ULCERATIVE
     Route: 042
  4. TRAMADOL HCL [Suspect]
     Indication: ARTHRALGIA
  5. FLAGYL [Concomitant]
  6. ENTOCORT EC [Concomitant]
  7. PREDNISONE [Concomitant]

REACTIONS (15)
  - ANTIPHOSPHOLIPID ANTIBODIES POSITIVE [None]
  - ARTHRALGIA [None]
  - DEPRESSION [None]
  - DRUG EFFECT DECREASED [None]
  - EAR PAIN [None]
  - GASTROOESOPHAGEAL REFLUX DISEASE [None]
  - HEADACHE [None]
  - HYPERSENSITIVITY [None]
  - MUSCULOSKELETAL STIFFNESS [None]
  - MYALGIA [None]
  - NAUSEA [None]
  - OEDEMA PERIPHERAL [None]
  - PAIN IN JAW [None]
  - PHARYNGEAL OEDEMA [None]
  - RESTLESS LEGS SYNDROME [None]
